FAERS Safety Report 6172805-0 (Version None)
Quarter: 2009Q2

REPORT INFORMATION
  Report Type: 
  Country: None (occurrence: None)
  Receive Date: 20090428
  Receipt Date: 20090414
  Transmission Date: 20091009
  Serious: Yes (Congenital Anomaly)
  Sender: FDA-Public Use
  Company Number: 8044947

PATIENT
  Sex: Male

DRUGS (5)
  1. KEPPRA [Suspect]
     Indication: EPILEPSY
     Dosage: TRP
     Route: 064
  2. DEPAKENE [Suspect]
     Indication: EPILEPSY
     Dosage: TRP
     Route: 064
  3. FRISIUM [Suspect]
     Indication: EPILEPSY
     Dosage: TRP
     Route: 064
  4. FENEMAL [Suspect]
     Indication: EPILEPSY
     Dosage: TRP
     Route: 064
  5. ZONISAMIDE [Suspect]
     Indication: EPILEPSY
     Dosage: TRP
     Route: 064

REACTIONS (3)
  - CONGENITAL FOOT MALFORMATION [None]
  - EPILEPSY [None]
  - MATERNAL DRUGS AFFECTING FOETUS [None]
